FAERS Safety Report 19042487 (Version 1)
Quarter: 2021Q1

REPORT INFORMATION
  Report Type: Spontaneous
  Country: US (occurrence: US)
  Receive Date: 20210323
  Receipt Date: 20210323
  Transmission Date: 20210420
  Serious: Yes (Hospitalization)
  Sender: FDA-Public Use
  Company Number: US-PFIZER INC-2021286692

PATIENT
  Age: 29 Year
  Sex: Female

DRUGS (1)
  1. ERYTHROMYCIN. [Suspect]
     Active Substance: ERYTHROMYCIN
     Indication: COUGH
     Dosage: 500 MG, 4X/DAY
     Route: 048

REACTIONS (5)
  - Torsade de pointes [Recovered/Resolved]
  - Condition aggravated [Recovered/Resolved]
  - Ventricular arrhythmia [Recovered/Resolved]
  - Syncope [Recovered/Resolved]
  - Electrocardiogram QT prolonged [Recovered/Resolved]
